FAERS Safety Report 6841434-5 (Version None)
Quarter: 2010Q3

REPORT INFORMATION
  Report Type: 
  Country: None (occurrence: None)
  Receive Date: 20100714
  Receipt Date: 20070706
  Transmission Date: 20110219
  Serious: No
  Sender: FDA-Public Use
  Company Number: US-PFIZER INC-2007057351

PATIENT
  Sex: Female

DRUGS (5)
  1. CHANTIX [Suspect]
     Indication: SMOKING CESSATION THERAPY
     Dosage: EVERYDAY
     Dates: start: 20070301
  2. ALL OTHER THERAPEUTIC PRODUCTS [Concomitant]
     Indication: GLAUCOMA
     Route: 047
  3. NEXIUM [Concomitant]
     Indication: GASTROOESOPHAGEAL REFLUX DISEASE
  4. NASONEX [Concomitant]
     Indication: MULTIPLE ALLERGIES
     Route: 045
  5. ZYRTEC [Concomitant]
     Indication: MULTIPLE ALLERGIES
     Dosage: AT NIGHT

REACTIONS (14)
  - ABDOMINAL DISTENSION [None]
  - ABNORMAL DREAMS [None]
  - CHOKING [None]
  - CONSTIPATION [None]
  - DRUG DOSE OMISSION [None]
  - FLUID RETENTION [None]
  - FOOD CRAVING [None]
  - HEADACHE [None]
  - HOT FLUSH [None]
  - INSOMNIA [None]
  - IRRITABILITY [None]
  - NAUSEA [None]
  - PARAESTHESIA [None]
  - WEIGHT INCREASED [None]
